FAERS Safety Report 14417964 (Version 3)
Quarter: 2018Q1

REPORT INFORMATION
  Report Type: Spontaneous
  Country: US (occurrence: US)
  Receive Date: 20180122
  Receipt Date: 20180320
  Transmission Date: 20180509
  Serious: Yes (Hospitalization)
  Sender: FDA-Public Use
  Company Number: US-IMPAX LABORATORIES, INC-2018-IPXL-00191

PATIENT
  Age: 56 Year
  Sex: Female
  Weight: 75 kg

DRUGS (3)
  1. RYTARY [Suspect]
     Active Substance: CARBIDOPA\LEVODOPA
     Dosage: 48.75/195MG, 2 CAPSULE FOUR TIMES A DAY + 23.75/95MG, 1 CAPSULE MID DAY
     Route: 048
     Dates: start: 201712
  2. AZILECT [Concomitant]
     Active Substance: RASAGILINE MESYLATE
     Indication: PARKINSON^S DISEASE
     Dosage: 1 MG, UNK
     Route: 065
  3. RYTARY [Suspect]
     Active Substance: CARBIDOPA\LEVODOPA
     Indication: PARKINSON^S DISEASE
     Dosage: 48.75/195 MG, 2 CAPSULE FOUR TIMES A DAY
     Route: 048
     Dates: start: 2016

REACTIONS (3)
  - Syncope [Recovered/Resolved]
  - Parkinson^s disease [Recovering/Resolving]
  - Drug effect variable [Unknown]

NARRATIVE: CASE EVENT DATE: 2017
